FAERS Safety Report 5294735-9 (Version None)
Quarter: 2007Q2

REPORT INFORMATION
  Report Type: 
  Country: None (occurrence: None)
  Receive Date: 20070406
  Receipt Date: 20070323
  Transmission Date: 20071010
  Serious: Yes (Other)
  Sender: FDA-Public Use
  Company Number: PHEH2007US03505

PATIENT
  Age: 44 Year
  Sex: Female

DRUGS (2)
  1. VISUDYNE [Suspect]
     Indication: PRESUMED OCULAR HISTOPLASMOSIS SYNDROME
     Dates: start: 20061201, end: 20061201
  2. UNSPECIFIED STEROID [Suspect]
     Dates: start: 20061201, end: 20061201

REACTIONS (1)
  - GLAUCOMA [None]
